FAERS Safety Report 12008875 (Version 1)
Quarter: 2016Q1

REPORT INFORMATION
  Report Type: Spontaneous
  Country: US (occurrence: None)
  Receive Date: 20160203
  Receipt Date: 20160203
  Transmission Date: 20160526
  Serious: Yes (Hospitalization)
  Sender: FDA-Public Use
  Company Number: None

PATIENT
  Age: 47 Year
  Sex: Female
  Weight: 97.07 kg

DRUGS (18)
  1. VITAMIN D [Concomitant]
     Active Substance: CHOLECALCIFEROL
  2. DIAZEPAM. [Concomitant]
     Active Substance: DIAZEPAM
  3. NUEDEXTA [Concomitant]
     Active Substance: DEXTROMETHORPHAN HYDROBROMIDE\QUINIDINE SULFATE
  4. TIZANIDINE. [Concomitant]
     Active Substance: TIZANIDINE
  5. CLONAZEPAM. [Concomitant]
     Active Substance: CLONAZEPAM
  6. BACLOFEN. [Concomitant]
     Active Substance: BACLOFEN
  7. ALEMTUZUMAB [Suspect]
     Active Substance: ALEMTUZUMAB
     Indication: MULTIPLE SCLEROSIS
     Route: 042
     Dates: start: 20150505, end: 20150507
  8. DIFLUCAN [Concomitant]
     Active Substance: FLUCONAZOLE
  9. OMEPRAZOLE. [Concomitant]
     Active Substance: OMEPRAZOLE
  10. SOLU-MEDROL [Suspect]
     Active Substance: METHYLPREDNISOLONE SODIUM SUCCINATE
     Route: 042
     Dates: start: 20150505, end: 20150507
  11. ACYCLOVIR. [Concomitant]
     Active Substance: ACYCLOVIR
  12. BOTOX [Concomitant]
     Active Substance: ONABOTULINUMTOXINA
  13. LYRICA [Concomitant]
     Active Substance: PREGABALIN
  14. CLONIDINE. [Concomitant]
     Active Substance: CLONIDINE
  15. PHENTERMINE. [Concomitant]
     Active Substance: PHENTERMINE
  16. HYDROXYZINE [Concomitant]
     Active Substance: HYDROXYZINE\HYDROXYZINE HYDROCHLORIDE
  17. PROAIR HFA [Concomitant]
     Active Substance: ALBUTEROL SULFATE
  18. METOPROLOL. [Concomitant]
     Active Substance: METOPROLOL

REACTIONS (4)
  - Neurogenic bladder [None]
  - Urinary retention [None]
  - Stress urinary incontinence [None]
  - Postoperative ileus [None]

NARRATIVE: CASE EVENT DATE: 20150831
